FAERS Safety Report 23106915 (Version 1)
Quarter: 2023Q4

REPORT INFORMATION
  Report Type: Spontaneous
  Country: US (occurrence: US)
  Receive Date: 20231026
  Receipt Date: 20231026
  Transmission Date: 20240110
  Serious: Yes (Other)
  Sender: FDA-Public Use
  Company Number: US-SANDOZ-SDZ2023US045745

PATIENT
  Age: 74 Year
  Sex: Female

DRUGS (1)
  1. LOSARTAN [Suspect]
     Active Substance: LOSARTAN
     Indication: Product used for unknown indication
     Dosage: UNK
     Route: 065

REACTIONS (7)
  - Pneumonia [Recovering/Resolving]
  - Cardiac failure congestive [Recovering/Resolving]
  - Cardiomyopathy [Recovering/Resolving]
  - Nasopharyngitis [Recovering/Resolving]
  - Bronchitis [Recovering/Resolving]
  - Respiratory syncytial virus infection [Recovering/Resolving]
  - Cardiomegaly [Recovering/Resolving]

NARRATIVE: CASE EVENT DATE: 20221201
